FAERS Safety Report 8408448-5 (Version None)
Quarter: 2012Q2

REPORT INFORMATION
  Report Type: 
  Country: None (occurrence: None)
  Receive Date: 20120604
  Receipt Date: 20120503
  Transmission Date: 20120825
  Serious: No
  Sender: FDA-Public Use
  Company Number: US-ASTRAZENECA-2012SE28773

PATIENT
  Sex: Female

DRUGS (4)
  1. LIPITOR [Concomitant]
  2. WHOLE BLOOD [Concomitant]
  3. NEXIUM [Suspect]
     Route: 048
  4. NEXIUM [Suspect]
     Indication: DYSPEPSIA
     Route: 048

REACTIONS (6)
  - WEIGHT DECREASED [None]
  - HYPERCHLORHYDRIA [None]
  - INTENTIONAL DRUG MISUSE [None]
  - HIATUS HERNIA [None]
  - OFF LABEL USE [None]
  - DRUG EFFECT DECREASED [None]
